FAERS Safety Report 15921646 (Version 2)
Quarter: 2019Q1

REPORT INFORMATION
  Report Type: Spontaneous
  Country: US (occurrence: US)
  Receive Date: 20190205
  Receipt Date: 20190219
  Transmission Date: 20190417
  Serious: No
  Sender: FDA-Public Use
  Company Number: US-ALLERGAN-1768866US

PATIENT
  Sex: Female

DRUGS (2)
  1. BOTOX [Suspect]
     Active Substance: ONABOTULINUMTOXINA
     Indication: SINUS HEADACHE
     Dosage: UNK, SINGLE
     Route: 030
     Dates: start: 2007, end: 2007
  2. BOTOX [Suspect]
     Active Substance: ONABOTULINUMTOXINA
     Indication: SINUS DISORDER

REACTIONS (2)
  - Off label use [Unknown]
  - Product preparation error [Unknown]

NARRATIVE: CASE EVENT DATE: 2007
